FAERS Safety Report 5023983-8 (Version None)
Quarter: 2006Q2

REPORT INFORMATION
  Report Type: 
  Country: None (occurrence: None)
  Receive Date: 20060426
  Receipt Date: 20060317
  Transmission Date: 20061013
  Serious: Yes (Other)
  Sender: FDA-Public Use
  Company Number: 2006041918

PATIENT
  Age: 54 Year
  Sex: Female

DRUGS (4)
  1. LYRICA [Suspect]
     Indication: PAIN
     Dosage: 300 MG (150 MG, 2 IN 1 D),
  2. OXYCONTIN [Concomitant]
  3. CELEBREX [Concomitant]
  4. LIDODERM [Concomitant]

REACTIONS (1)
  - DYSARTHRIA [None]
